FAERS Safety Report 9196149 (Version 2)
Quarter: 2013Q2

REPORT INFORMATION
  Report Type: Spontaneous
  Country: NL (occurrence: NL)
  Receive Date: 20130328
  Receipt Date: 20130402
  Transmission Date: 20140414
  Serious: Yes (Other)
  Sender: FDA-Public Use
  Company Number: NL-UCBSA-081594

PATIENT
  Age: 51 Year
  Sex: Female

DRUGS (3)
  1. VIMPAT [Suspect]
     Indication: EPILEPSY
     Dosage: 3 TABLETS OF 50MG
     Dates: start: 2011
  2. VIMPAT [Suspect]
     Indication: EPILEPSY
  3. ATACAND [Concomitant]
     Indication: HYPERTENSION

REACTIONS (3)
  - Loss of consciousness [Recovered/Resolved]
  - Fatigue [Unknown]
  - Drug ineffective [Not Recovered/Not Resolved]
